FAERS Safety Report 8586218-5 (Version None)
Quarter: 2012Q3

REPORT INFORMATION
  Report Type: 
  Country: None (occurrence: None)
  Receive Date: 20120810
  Receipt Date: 20120801
  Transmission Date: 20120928
  Serious: Yes (Other)
  Sender: FDA-Public Use
  Company Number: US-ASTRAZENECA-2011SE10177

PATIENT
  Age: 69 Year
  Sex: Female

DRUGS (4)
  1. SEROQUEL [Suspect]
     Route: 048
  2. SEROQUEL [Suspect]
     Route: 048
  3. CRESTOR [Suspect]
     Route: 048
  4. NEXIUM [Suspect]
     Route: 048

REACTIONS (3)
  - SPEECH DISORDER [None]
  - PARALYSIS [None]
  - CEREBROVASCULAR ACCIDENT [None]
